FAERS Safety Report 10731438 (Version 1)
Quarter: 2015Q1

REPORT INFORMATION
  Report Type: Spontaneous
  Country: IN (occurrence: IN)
  Receive Date: 20150123
  Receipt Date: 20150123
  Transmission Date: 20150721
  Serious: Yes (Death, Other)
  Sender: FDA-Public Use
  Company Number: IN-AUROBINDO-AUR-APL-2015-00317

PATIENT
  Age: 57 Year
  Sex: Male

DRUGS (1)
  1. CLOPIDOGREL [Suspect]
     Active Substance: CLOPIDOGREL BISULFATE
     Indication: PRODUCT USED FOR UNKNOWN INDICATION
     Dosage: UNK
     Route: 065

REACTIONS (9)
  - Pyrexia [Unknown]
  - Jaundice [Unknown]
  - Pallor [Unknown]
  - Thrombotic thrombocytopenic purpura [Fatal]
  - Abnormal behaviour [Unknown]
  - Haemorrhagic infarction [Fatal]
  - Abdominal pain upper [Unknown]
  - Thrombocytopenia [Unknown]
  - Haemolysis [Unknown]
